FAERS Safety Report 7018365-3 (Version None)
Quarter: 2010Q3

REPORT INFORMATION
  Report Type: 
  Country: None (occurrence: None)
  Receive Date: 20100928
  Receipt Date: 20100914
  Transmission Date: 20110219
  Serious: Yes (Other)
  Sender: FDA-Public Use
  Company Number: PHHY2010JP62254

PATIENT
  Age: 3 Year
  Sex: Male

DRUGS (1)
  1. GLEEVEC [Suspect]
     Indication: CHRONIC MYELOID LEUKAEMIA
     Dosage: 260 MG/M2, UNK
     Route: 048

REACTIONS (2)
  - MUSCLE SPASMS [None]
  - TRANSPLANT [None]
